FAERS Safety Report 12803118 (Version 1)
Quarter: 2016Q4

REPORT INFORMATION
  Report Type: Spontaneous
  Country: US (occurrence: US)
  Receive Date: 20161003
  Receipt Date: 20161003
  Transmission Date: 20170207
  Serious: No
  Sender: FDA-Public Use
  Company Number: PHEH2016US024637

PATIENT
  Age: 54 Year
  Sex: Female

DRUGS (1)
  1. MEKINIST [Suspect]
     Active Substance: TRAMETINIB DIMETHYL SULFOXIDE
     Indication: PLASMA CELL MYELOMA
     Dosage: 2 MG, QD
     Route: 048
     Dates: start: 20160807

REACTIONS (5)
  - Tremor [Unknown]
  - Peripheral swelling [Unknown]
  - Product use issue [Unknown]
  - Pyrexia [Unknown]
  - Acne [Unknown]

NARRATIVE: CASE EVENT DATE: 201609
